APPROVED DRUG PRODUCT: GVOKE HYPOPEN
Active Ingredient: GLUCAGON
Strength: 0.5MG/0.1ML (0.5MG/0.1ML)
Dosage Form/Route: SOLUTION;SUBCUTANEOUS
Application: N212097 | Product #003
Applicant: XERIS PHARMACEUTICALS INC
Approved: Sep 10, 2019 | RLD: Yes | RS: Yes | Type: RX

PATENTS:
Patent 9649364 | Expires: Apr 22, 2036
Patent 11590205 | Expires: Apr 22, 2036